APPROVED DRUG PRODUCT: PRIMIDONE
Active Ingredient: PRIMIDONE
Strength: 250MG
Dosage Form/Route: TABLET;ORAL
Application: A040586 | Product #002 | TE Code: AB
Applicant: OXFORD PHARMACEUTICALS LLC
Approved: Feb 24, 2005 | RLD: No | RS: No | Type: RX